FAERS Safety Report 6172765-2 (Version None)
Quarter: 2009Q2

REPORT INFORMATION
  Report Type: 
  Country: None (occurrence: None)
  Receive Date: 20090430
  Receipt Date: 20090424
  Transmission Date: 20091009
  Serious: No
  Sender: FDA-Public Use
  Company Number: AU-JNJFOC-20090406359

PATIENT
  Age: 16 Year
  Sex: Male

DRUGS (4)
  1. DURAGESIC-100 [Suspect]
     Indication: DRUG USE FOR UNKNOWN INDICATION
     Route: 062
  2. PAIN CONTROLLED ANALGESIA [Concomitant]
     Route: 065
  3. OMEPRAZOLE [Concomitant]
     Route: 065
  4. ONDENZATRON [Concomitant]
     Route: 065

REACTIONS (1)
  - APPLICATION SITE RASH [None]
